FAERS Safety Report 9911884 (Version 2)
Quarter: 2014Q1

REPORT INFORMATION
  Report Type: Spontaneous
  Country: US (occurrence: US)
  Receive Date: 20140219
  Receipt Date: 20140219
  Transmission Date: 20141002
  Serious: No
  Sender: FDA-Public Use
  Company Number: US-MYLANLABS-2013S1014468

PATIENT
  Age: 3 Year
  Sex: Female

DRUGS (1)
  1. EPIPEN JR [Suspect]
     Dosage: 0.15 MG, 1:2000, 0.3 ML, 1 DOSE
     Route: 058
     Dates: start: 20130621, end: 20130621

REACTIONS (1)
  - Accidental exposure to product by child [Recovered/Resolved]
